FAERS Safety Report 24439090 (Version 2)
Quarter: 2025Q1

REPORT INFORMATION
  Report Type: Spontaneous
  Country: US (occurrence: US)
  Receive Date: 20241015
  Receipt Date: 20250115
  Transmission Date: 20250409
  Serious: No
  Sender: BRISTOL-MYERS SQUIBB COMPANY
  Company Number: US-BRISTOL-MYERS SQUIBB COMPANY-2024-162532

PATIENT
  Age: 66 Year
  Sex: Female
  Weight: 107.95 kg

DRUGS (2)
  1. OPDIVO [Suspect]
     Active Substance: NIVOLUMAB
     Indication: Neuroendocrine tumour
     Dosage: STRENGTH: 100MG, 120MG, 240MG VIAL
     Dates: start: 20240722
  2. YERVOY [Suspect]
     Active Substance: IPILIMUMAB
     Indication: Neuroendocrine tumour
     Dates: start: 20240722

REACTIONS (2)
  - Rash [Unknown]
  - Off label use [Unknown]
